FAERS Safety Report 8338211-5 (Version None)
Quarter: 2012Q2

REPORT INFORMATION
  Report Type: 
  Country: None (occurrence: None)
  Receive Date: 20120504
  Receipt Date: 20120425
  Transmission Date: 20120825
  Serious: Yes (Other)
  Sender: FDA-Public Use
  Company Number: US-BRISTOL-MYERS SQUIBB COMPANY-16549065

PATIENT
  Age: 74 Year
  Sex: Male

DRUGS (2)
  1. SPRYCEL [Suspect]
     Dosage: WENT BACK 20APR2012
  2. PREVACID [Concomitant]

REACTIONS (6)
  - ANGINA PECTORIS [None]
  - SLEEP APNOEA SYNDROME [None]
  - GASTROINTESTINAL HAEMORRHAGE [None]
  - PERICARDIAL EFFUSION [None]
  - RASH MACULAR [None]
  - WEIGHT INCREASED [None]
